FAERS Safety Report 6847757-8 (Version None)
Quarter: 2010Q3

REPORT INFORMATION
  Report Type: 
  Country: None (occurrence: None)
  Receive Date: 20100714
  Receipt Date: 20100705
  Transmission Date: 20110219
  Serious: Yes (Other)
  Sender: FDA-Public Use
  Company Number: 2010US002683

PATIENT
  Age: 18 Year
  Sex: Female

DRUGS (1)
  1. PROGRAF [Suspect]
     Indication: LIVER TRANSPLANT

REACTIONS (4)
  - CHRONIC HEPATITIS [None]
  - LIVER TRANSPLANT [None]
  - PLEURAL EFFUSION [None]
  - SPUR CELL ANAEMIA [None]
